FAERS Safety Report 9784164 (Version 2)
Quarter: 2014Q1

REPORT INFORMATION
  Report Type: Spontaneous
  Country: GB (occurrence: GB)
  Receive Date: 20131226
  Receipt Date: 20140120
  Transmission Date: 20141002
  Serious: Yes (Hospitalization, Congenital Anomaly, Other)
  Sender: FDA-Public Use
  Company Number: GB-MYLANLABS-2013S1028200

PATIENT
  Sex: Male
  Weight: 3.4 kg

DRUGS (10)
  1. OLANZAPINE [Suspect]
     Route: 064
  2. ZOPICLONE [Suspect]
     Route: 064
  3. CHLORPROMAZINE [Suspect]
     Route: 064
  4. CYCLIZINE [Suspect]
     Route: 064
  5. ENTONOX [Suspect]
     Route: 064
  6. HALOPERIDOL [Suspect]
     Route: 064
  7. PROMETHAZINE [Suspect]
     Route: 064
  8. RISPERDAL [Suspect]
     Route: 064
  9. SENNA [Suspect]
  10. SYNTOMETRINE /00145001/ [Suspect]
     Route: 064

REACTIONS (5)
  - Dextrocardia [Unknown]
  - Exposure during pregnancy [Recovered/Resolved]
  - Foetal alcohol syndrome [Unknown]
  - Visual impairment [Unknown]
  - Drug withdrawal syndrome [Unknown]
